FAERS Safety Report 8076239-3 (Version None)
Quarter: 2012Q1

REPORT INFORMATION
  Report Type: 
  Country: None (occurrence: None)
  Receive Date: 20120117
  Receipt Date: 20120110
  Transmission Date: 20120608
  Serious: Yes (Death)
  Sender: FDA-Public Use
  Company Number: 1000027172

PATIENT
  Age: 53 Year
  Sex: Female

DRUGS (6)
  1. CITALOPRAM HYDROBROMIDE [Suspect]
     Dosage: ORAL
     Route: 048
  2. DULOXETINE HYDROCHLORIDE [Suspect]
     Dosage: ORAL
     Route: 048
  3. DOXEPIN HCL [Suspect]
     Dosage: ORAL
     Route: 048
  4. LITHIUM CARBONATE [Suspect]
     Dosage: ORAL
     Route: 048
  5. ALPRAZOLAM [Suspect]
     Dosage: ORAL
     Route: 048
  6. TOPIRAMATE [Suspect]
     Dosage: ORAL
     Route: 048

REACTIONS (1)
  - CARDIO-RESPIRATORY ARREST [None]
